FAERS Safety Report 8786426 (Version 1)
Quarter: 2012Q4

REPORT INFORMATION
  Report Type: 
  Country: FR (occurrence: FR)
  Receive Date: 20120914
  Receipt Date: 20120914
  Transmission Date: 20130627
  Serious: Yes (Hospitalization)
  Sender: FDA-Public Use
  Company Number: FR-009507513-1209FRA005815

PATIENT

DRUGS (2)
  1. TIMOPTOL [Suspect]
     Dosage: UNK
     Route: 047
  2. DIAMICRON [Suspect]
     Indication: TYPE 2 DIABETES MELLITUS
     Route: 048

REACTIONS (1)
  - Cerebral vasoconstriction [Recovered/Resolved]
